FAERS Safety Report 6145202-1 (Version None)
Quarter: 2009Q2

REPORT INFORMATION
  Report Type: 
  Country: None (occurrence: None)
  Receive Date: 20090406
  Receipt Date: 20090330
  Transmission Date: 20091009
  Serious: Yes (Other)
  Sender: FDA-Public Use
  Company Number: US-ROXANE LABORATORIES, INC.-2009-RO-00302RO

PATIENT
  Age: 54 Year
  Sex: Female

DRUGS (9)
  1. MORPHINE [Suspect]
     Indication: ANALGESIC THERAPY
     Route: 042
  2. MORPHINE [Suspect]
  3. CODEINE SUL TAB [Suspect]
     Indication: ANALGESIC THERAPY
  4. HYDROMORPHONE HCL [Suspect]
     Indication: PAIN
  5. ROXICET [Suspect]
     Indication: ANALGESIC THERAPY
     Route: 048
  6. FAMOTIDINE [Suspect]
     Indication: NAUSEA
     Dosage: 40MG
     Route: 042
  7. PROMETHAZINE [Suspect]
     Indication: NAUSEA
     Route: 042
  8. KETOROLAC [Suspect]
     Indication: DISCOMFORT
     Dosage: 30MG
     Route: 042
  9. DIMENHYDRINATE [Suspect]
     Indication: PROPHYLAXIS OF NAUSEA AND VOMITING
     Route: 048

REACTIONS (8)
  - BACK PAIN [None]
  - DRUG INEFFECTIVE [None]
  - DYSKINESIA [None]
  - HEADACHE [None]
  - MUSCLE SPASMS [None]
  - NAUSEA [None]
  - RESTLESSNESS [None]
  - VOMITING [None]
